FAERS Safety Report 12094023 (Version 1)
Quarter: 2016Q1

REPORT INFORMATION
  Report Type: Spontaneous
  Country: US (occurrence: US)
  Receive Date: 20160219
  Receipt Date: 20160219
  Transmission Date: 20160526
  Serious: Yes (Other)
  Sender: FDA-Public Use
  Company Number: US-JNJFOC-20160212748

PATIENT
  Age: 57 Year
  Sex: Female
  Weight: 107.05 kg

DRUGS (1)
  1. INVOKANA [Suspect]
     Active Substance: CANAGLIFLOZIN
     Indication: TYPE 2 DIABETES MELLITUS
     Route: 048
     Dates: start: 2014

REACTIONS (4)
  - Neuralgia [Unknown]
  - Peripheral artery stenosis [Not Recovered/Not Resolved]
  - Adverse event [Unknown]
  - Ingrowing nail [Recovered/Resolved]

NARRATIVE: CASE EVENT DATE: 201510
